FAERS Safety Report 13680506 (Version 1)
Quarter: 2017Q2

REPORT INFORMATION
  Report Type: Report from Study
  Country: None (occurrence: AR)
  Receive Date: 20170623
  Receipt Date: 20170623
  Transmission Date: 20170830
  Serious: Yes (Other)
  Sender: FDA-Public Use
  Company Number: AR-ABBVIE-17K-007-2017360-00

PATIENT
  Sex: Female

DRUGS (1)
  1. HUMIRA [Suspect]
     Active Substance: ADALIMUMAB
     Indication: RHEUMATOID ARTHRITIS
     Route: 058
     Dates: start: 20141001

REACTIONS (4)
  - Skin ulcer [Unknown]
  - Memory impairment [Unknown]
  - Vasculitis [Recovered/Resolved]
  - Nail discolouration [Unknown]

NARRATIVE: CASE EVENT DATE: 2016
